FAERS Safety Report 10596425 (Version 1)
Quarter: 2014Q4

REPORT INFORMATION
  Report Type: Spontaneous
  Country: US (occurrence: US)
  Receive Date: 20141120
  Receipt Date: 20141120
  Transmission Date: 20150529
  Serious: Yes (Other)
  Sender: FDA-Public Use
  Company Number: PHHY2013US073145

PATIENT
  Sex: Male
  Weight: 145.13 kg

DRUGS (1)
  1. LOPRESSOR [Suspect]
     Active Substance: METOPROLOL TARTRATE
     Indication: HYPERTENSION
     Dosage: UNK UKN, UNK

REACTIONS (1)
  - Erectile dysfunction [Not Recovered/Not Resolved]
